FAERS Safety Report 19159311 (Version 4)
Quarter: 2021Q3

REPORT INFORMATION
  Report Type: Spontaneous
  Country: US (occurrence: US)
  Receive Date: 20210420
  Receipt Date: 20210818
  Transmission Date: 20211014
  Serious: No
  Sender: FDA-Public Use
  Company Number: US-BIOMARINAP-US-2021-135943

PATIENT
  Sex: Female
  Weight: 12.7 kg

DRUGS (1)
  1. VIMIZIM [Suspect]
     Active Substance: ELOSULFASE ALFA
     Indication: MUCOPOLYSACCHARIDOSIS IV
     Dosage: UNK, QW
     Route: 065
     Dates: start: 20191112

REACTIONS (13)
  - Back pain [Not Recovered/Not Resolved]
  - Pain [Not Recovered/Not Resolved]
  - Asthenia [Unknown]
  - Drug ineffective [Unknown]
  - Sleep disorder [Unknown]
  - Arthralgia [Unknown]
  - Sleep apnoea syndrome [Unknown]
  - Pain in extremity [Not Recovered/Not Resolved]
  - Gait disturbance [Not Recovered/Not Resolved]
  - Mobility decreased [Not Recovered/Not Resolved]
  - Paraesthesia [Unknown]
  - Fatigue [Not Recovered/Not Resolved]
  - Fall [Not Recovered/Not Resolved]
